FAERS Safety Report 17410849 (Version 4)
Quarter: 2020Q1

REPORT INFORMATION
  Report Type: Report from Study
  Country: US (occurrence: US)
  Receive Date: 20200212
  Receipt Date: 20200310
  Transmission Date: 20200409
  Serious: Yes (Hospitalization, Disabling)
  Sender: FDA-Public Use
  Company Number: NVSC2020US032826

PATIENT
  Age: 58 Year
  Sex: Male
  Weight: 65 kg

DRUGS (4)
  1. VOTRIENT [Suspect]
     Active Substance: PAZOPANIB HYDROCHLORIDE
     Indication: RENAL CELL CARCINOMA
     Dosage: 800 MG, QD
     Route: 048
     Dates: start: 20200101, end: 20200121
  2. AFINITOR [Suspect]
     Active Substance: EVEROLIMUS
     Indication: PRODUCT USED FOR UNKNOWN INDICATION
     Dosage: UNK
     Route: 065
  3. VOTRIENT [Suspect]
     Active Substance: PAZOPANIB HYDROCHLORIDE
     Dosage: 600 MG
     Route: 048
  4. VOTRIENT [Suspect]
     Active Substance: PAZOPANIB HYDROCHLORIDE
     Dosage: UNK
     Route: 048
     Dates: start: 20200124

REACTIONS (12)
  - Blood chloride decreased [Unknown]
  - Abdominal distension [Unknown]
  - Brain natriuretic peptide increased [Unknown]
  - Failure to thrive [Not Recovered/Not Resolved]
  - Acute left ventricular failure [Recovered/Resolved with Sequelae]
  - Orthopnoea [Unknown]
  - Malnutrition [Not Recovered/Not Resolved]
  - Pain [Unknown]
  - Hyponatraemia [Unknown]
  - Dyspnoea [Not Recovered/Not Resolved]
  - Electrolyte imbalance [Unknown]
  - Scrotal oedema [Unknown]

NARRATIVE: CASE EVENT DATE: 20191216
